FAERS Safety Report 8333586 (Version 2)
Quarter: 2014Q1

REPORT INFORMATION
  Report Type: Spontaneous
  Country: US (occurrence: US)
  Receive Date: 20111130
  Receipt Date: 20140204
  Transmission Date: 20141002
  Serious: Yes (Hospitalization, Other)
  Sender: FDA-Public Use
  Company Number: US201107006511

PATIENT
  Age: 52 Year
  Sex: Male
  Weight: 95.24 kg

DRUGS (17)
  1. BYETTA PEN DISPOSABLE [Suspect]
     Indication: TYPE 2 DIABETES MELLITUS
     Dosage: 10MG SEP05 TO 17MAR09?5MG 03FEB10 TO MAR10
     Dates: start: 200509, end: 201003
  2. VICTOZA [Suspect]
     Indication: TYPE 2 DIABETES MELLITUS
     Dates: start: 2010, end: 201204
  3. LIPITOR [Concomitant]
     Indication: BLOOD CHOLESTEROL
  4. LASIX [Concomitant]
     Indication: FLUID RETENTION
  5. AMARYL [Concomitant]
  6. METFORMIN [Concomitant]
  7. AVANDIA [Concomitant]
  8. TOPAMAX [Concomitant]
  9. ZOCOR [Concomitant]
  10. HYDROCHLOROTHIAZIDE [Concomitant]
  11. DIOVAN [Concomitant]
  12. DIOVAN [Concomitant]
  13. NORVASC [Concomitant]
  14. ALTACE [Concomitant]
  15. CATAPRES-TTS [Concomitant]
  16. KAYEXALATE [Concomitant]
  17. ZAROXOLYN [Concomitant]
     Indication: OEDEMA PERIPHERAL

REACTIONS (9)
  - Pancreatic carcinoma [Unknown]
  - Pancreatic operation [Recovered/Resolved]
  - Splenectomy [Recovered/Resolved]
  - Surgery [Recovered/Resolved]
  - Renal failure chronic [Not Recovered/Not Resolved]
  - Pancreatitis [Unknown]
  - Mobility decreased [Unknown]
  - Asthenia [Unknown]
  - Dizziness [Unknown]
